FAERS Safety Report 25898242 (Version 1)
Quarter: 2025Q4

REPORT INFORMATION
  Report Type: Spontaneous
  Country: JP (occurrence: JP)
  Receive Date: 20251008
  Receipt Date: 20251008
  Transmission Date: 20260117
  Serious: Yes (Other)
  Sender: AMGEN
  Company Number: JP-AMGEN-JPNSP2025196941

PATIENT
  Age: 8 Decade
  Sex: Female

DRUGS (2)
  1. IMDELLTRA [Suspect]
     Active Substance: TARLATAMAB-DLLE
     Indication: Small cell lung cancer extensive stage
     Dosage: UNK, DAY 1, INJECTION
     Route: 040
  2. IMDELLTRA [Suspect]
     Active Substance: TARLATAMAB-DLLE
     Dosage: UNK, DAY 8, INJECTION
     Route: 040

REACTIONS (5)
  - Cytokine release syndrome [Recovered/Resolved]
  - Delirium [Unknown]
  - Pleural effusion [Unknown]
  - Neutrophil count abnormal [Unknown]
  - Anaemia [Unknown]
